FAERS Safety Report 11213418 (Version 1)
Quarter: 2015Q2

REPORT INFORMATION
  Report Type: Spontaneous
  Country: FR (occurrence: FR)
  Receive Date: 20150623
  Receipt Date: 20150623
  Transmission Date: 20150821
  Serious: Yes (Other)
  Sender: FDA-Public Use
  Company Number: FR-ABBVIE-15P-056-1414157-00

PATIENT
  Sex: Male

DRUGS (4)
  1. TAHOR [Suspect]
     Active Substance: ATORVASTATIN CALCIUM
     Indication: CORONARY ARTERY DISEASE
     Route: 048
  2. TAHOR [Suspect]
     Active Substance: ATORVASTATIN CALCIUM
     Indication: CORONARY ARTERIAL STENT INSERTION
     Route: 065
  3. LIPANTHYL 160MG [Suspect]
     Active Substance: FENOFIBRATE
     Indication: CORONARY ARTERIAL STENT INSERTION
     Route: 048
  4. LIPANTHYL 160MG [Suspect]
     Active Substance: FENOFIBRATE
     Indication: CORONARY ARTERY DISEASE
     Route: 065

REACTIONS (1)
  - Muscle rupture [Unknown]

NARRATIVE: CASE EVENT DATE: 201505
